FAERS Safety Report 11976746 (Version 1)
Quarter: 2016Q1

REPORT INFORMATION
  Report Type: Spontaneous
  Country: US (occurrence: None)
  Receive Date: 20160128
  Receipt Date: 20160128
  Transmission Date: 20160526
  Serious: No
  Sender: FDA-Public Use
  Company Number: None

PATIENT
  Age: 41 Year
  Sex: Female

DRUGS (9)
  1. MULT VIT-BET CHW FL [Concomitant]
  2. ZOLADEX [Concomitant]
     Active Substance: GOSERELIN ACETATE
  3. LETROZOLE. [Concomitant]
     Active Substance: LETROZOLE
  4. LORAZEPAM. [Concomitant]
     Active Substance: LORAZEPAM
  5. IBRANCE [Suspect]
     Active Substance: PALBOCICLIB
     Indication: BREAST CANCER
     Dosage: 100MG QD FOR 21 DS 7 OFF ORAL
     Route: 048
     Dates: start: 20150407
  6. ACYCLOVIR. [Concomitant]
     Active Substance: ACYCLOVIR
  7. CEPHALEXIN. [Concomitant]
     Active Substance: CEPHALEXIN
  8. PREVACID [Concomitant]
     Active Substance: LANSOPRAZOLE
  9. CALCIUM [Concomitant]
     Active Substance: CALCIUM

REACTIONS (1)
  - White blood cell count decreased [None]

NARRATIVE: CASE EVENT DATE: 201510
